FAERS Safety Report 20951710 (Version 1)
Quarter: 2022Q2

REPORT INFORMATION
  Report Type: Spontaneous
  Country: US (occurrence: US)
  Receive Date: 20220613
  Receipt Date: 20220613
  Transmission Date: 20220721
  Serious: Yes (Hospitalization, Disabling, Other)
  Sender: FDA-Public Use
  Company Number: US-PFIZER INC-2012324778

PATIENT
  Age: 59 Year
  Sex: Male

DRUGS (7)
  1. HEPARIN SODIUM [Suspect]
     Active Substance: HEPARIN SODIUM
     Indication: Thrombosis
     Dosage: UNK
     Route: 042
  2. HEPARIN SODIUM [Suspect]
     Active Substance: HEPARIN SODIUM
     Indication: Thrombolysis
  3. EPTIFIBATIDE [Concomitant]
     Active Substance: EPTIFIBATIDE
     Indication: Thrombosis
     Dosage: UNK
  4. EPTIFIBATIDE [Concomitant]
     Active Substance: EPTIFIBATIDE
     Indication: Thrombolysis
  5. LOVENOX [Concomitant]
     Active Substance: ENOXAPARIN SODIUM
     Indication: Thrombosis
     Dosage: UNK
  6. WARFARIN [Concomitant]
     Active Substance: WARFARIN
     Indication: Thrombosis
  7. ALTEPLASE [Concomitant]
     Active Substance: ALTEPLASE
     Indication: Thrombolysis
     Dosage: UNK

REACTIONS (8)
  - Heparin-induced thrombocytopenia [Unknown]
  - Heparin-induced thrombocytopenia [Unknown]
  - Ecthyma [Unknown]
  - Skin necrosis [Recovered/Resolved]
  - Thrombosis [Not Recovered/Not Resolved]
  - Erythema [Unknown]
  - Staphylococcal infection [Unknown]
  - Venous thrombosis [Unknown]
